FAERS Safety Report 9875961 (Version 1)
Quarter: 2014Q1

REPORT INFORMATION
  Report Type: Spontaneous
  Country: GB (occurrence: None)
  Receive Date: 20140204
  Receipt Date: 20140204
  Transmission Date: 20141002
  Serious: Yes (Other)
  Sender: FDA-Public Use
  Company Number: AUR-APL-2014-00633

PATIENT
  Age: 30 Year
  Sex: Male

DRUGS (3)
  1. AMOXICILLIN (AMOXICILLIN) [Suspect]
     Indication: INFECTION
     Dates: start: 20140106
  2. AMLODIPINE (AMLODIPINE) [Concomitant]
  3. SODIUM BICARBONATE (SODIUIM BICARBONATE) [Concomitant]

REACTIONS (1)
  - Tinnitus [None]
